FAERS Safety Report 4590384-6 (Version None)
Quarter: 2005Q1

REPORT INFORMATION
  Report Type: 
  Country: None (occurrence: None)
  Receive Date: 20050224
  Receipt Date: 20050218
  Transmission Date: 20050727
  Serious: Yes (Hospitalization)
  Sender: FDA-Public Use
  Company Number: JP-MERCK-0502USA02644

PATIENT
  Age: 31 Year
  Sex: Female

DRUGS (1)
  1. COZAAR [Suspect]
     Indication: GLOMERULONEPHRITIS PROLIFERATIVE
     Route: 048
     Dates: start: 20050203, end: 20050216

REACTIONS (2)
  - PLATELET COUNT DECREASED [None]
  - WHITE BLOOD CELL COUNT DECREASED [None]
